FAERS Safety Report 18630319 (Version 6)
Quarter: 2021Q2

REPORT INFORMATION
  Report Type: Report from Study
  Country: US (occurrence: US)
  Receive Date: 20201217
  Receipt Date: 20210503
  Transmission Date: 20210717
  Serious: No
  Sender: FDA-Public Use
  Company Number: NVSC2020US334211

PATIENT
  Sex: Female

DRUGS (6)
  1. COMPAZINE [Concomitant]
     Active Substance: PROCHLORPERAZINE MALEATE
     Indication: PRODUCT USED FOR UNKNOWN INDICATION
     Dosage: UNK
     Route: 065
  2. PIQRAY [Suspect]
     Active Substance: ALPELISIB
     Indication: PRODUCT USED FOR UNKNOWN INDICATION
     Dosage: 1 DF, QOD (300 MG)
     Route: 048
  3. PIQRAY [Suspect]
     Active Substance: ALPELISIB
     Dosage: 250 MG, QD
     Route: 065
  4. KISQALI [Suspect]
     Active Substance: RIBOCICLIB
     Indication: PRODUCT USED FOR UNKNOWN INDICATION
     Dosage: UNK
     Route: 048
  5. PIQRAY [Suspect]
     Active Substance: ALPELISIB
     Route: 048
  6. AFINITOR [Suspect]
     Active Substance: EVEROLIMUS
     Indication: PRODUCT USED FOR UNKNOWN INDICATION
     Dosage: 1 DF, QOD
     Route: 048

REACTIONS (13)
  - Hypersomnia [Unknown]
  - Fatigue [Unknown]
  - Diarrhoea [Unknown]
  - Decreased appetite [Unknown]
  - Off label use [Unknown]
  - Constipation [Unknown]
  - Nausea [Unknown]
  - Toxicity to various agents [Unknown]
  - Product dose omission issue [Unknown]
  - Weight decreased [Unknown]
  - Carbohydrate antigen 27.29 increased [Unknown]
  - Muscle spasms [Unknown]
  - Adverse drug reaction [Unknown]
